FAERS Safety Report 9393390 (Version 1)
Quarter: 2013Q3

REPORT INFORMATION
  Report Type: Spontaneous
  Country: NL (occurrence: NL)
  Receive Date: 20130710
  Receipt Date: 20130710
  Transmission Date: 20140515
  Serious: Yes (Other)
  Sender: FDA-Public Use
  Company Number: NL-PFIZER INC-2013188328

PATIENT
  Age: 54 Year
  Sex: Female

DRUGS (5)
  1. LYRICA [Suspect]
     Indication: ANXIETY DISORDER
     Dosage: 75 MG, 1X/DAY
  2. LYRICA [Suspect]
     Dosage: 75 MG, 2X/DAY
  3. OLANZAPINE [Concomitant]
     Indication: PSYCHOTIC DISORDER
     Dosage: 15 MG, UNK
     Route: 048
     Dates: start: 1999
  4. ALPRAZOLAM [Concomitant]
     Indication: ANXIETY
     Dosage: 0.5 MG, 3X/DAY
     Route: 048
     Dates: start: 2013
  5. FLUOXETINE [Concomitant]
     Indication: ANXIETY DISORDER
     Dosage: 60 MG, UNK
     Route: 048
     Dates: start: 2002

REACTIONS (5)
  - Angioedema [Recovered/Resolved]
  - Oedema genital [Recovered/Resolved]
  - Influenza like illness [Recovered/Resolved]
  - Abdominal distension [Recovered/Resolved]
  - Drug ineffective [Recovered/Resolved]
